FAERS Safety Report 21207416 (Version 1)
Quarter: 2022Q3

REPORT INFORMATION
  Report Type: Spontaneous
  Country: US (occurrence: US)
  Receive Date: 20220812
  Receipt Date: 20220812
  Transmission Date: 20221027
  Serious: No
  Sender: FDA-Public Use
  Company Number: US-KADMON-US-KAD-22-00444

PATIENT
  Sex: Male

DRUGS (1)
  1. REZUROCK [Suspect]
     Active Substance: BELUMOSUDIL
     Indication: Product used for unknown indication

REACTIONS (5)
  - Personality change [Unknown]
  - Agitation [Unknown]
  - Anger [Unknown]
  - Insomnia [Unknown]
  - Anxiety [Unknown]
